FAERS Safety Report 7152421-4 (Version None)
Quarter: 2010Q4

REPORT INFORMATION
  Report Type: 
  Country: None (occurrence: None)
  Receive Date: 20101124
  Receipt Date: 20101110
  Transmission Date: 20110411
  Serious: Yes (Other)
  Sender: FDA-Public Use
  Company Number: 2010GB0045

PATIENT
  Age: 3 Year

DRUGS (1)
  1. NITISINONE (NITISINONE) [Suspect]
     Indication: TYROSINAEMIA

REACTIONS (1)
  - GRAND MAL CONVULSION [None]
